FAERS Safety Report 6563493-X (Version None)
Quarter: 2010Q1

REPORT INFORMATION
  Report Type: 
  Country: None (occurrence: None)
  Receive Date: 20100130
  Receipt Date: 20091210
  Transmission Date: 20100710
  Serious: No
  Sender: FDA-Public Use
  Company Number: US-ABBOTT-09P-163-0614492-00

PATIENT
  Sex: Female
  Weight: 79.45 kg

DRUGS (9)
  1. HUMIRA [Suspect]
     Indication: RHEUMATOID ARTHRITIS
     Route: 058
     Dates: start: 20081101
  2. METHOTREXATE [Concomitant]
     Indication: RHEUMATOID ARTHRITIS
     Route: 058
  3. VESICARE [Concomitant]
     Indication: URINARY INCONTINENCE
     Route: 048
  4. VITAMIN D [Concomitant]
     Indication: VITAMIN D DEFICIENCY
     Route: 048
  5. FOLIC ACID [Concomitant]
     Indication: VITAMIN SUPPLEMENTATION
     Dosage: ONE NULL: 5/WEEK
     Route: 048
  6. SIMVASTATIN [Concomitant]
     Indication: BLOOD CHOLESTEROL INCREASED
     Route: 048
  7. MOXXOR [Concomitant]
     Indication: MEDICAL DIET
     Route: 048
     Dates: start: 20090901
  8. JUICE PLUS [Concomitant]
     Indication: MEDICAL DIET
     Route: 048
  9. VINEGAR [Concomitant]
     Indication: BLOOD PRESSURE
     Dosage: 2 TBSP/DAY
     Route: 048

REACTIONS (1)
  - INJECTION SITE PAIN [None]
